FAERS Safety Report 4572154-8 (Version None)
Quarter: 2005Q1

REPORT INFORMATION
  Report Type: 
  Country: None (occurrence: None)
  Receive Date: 20050202
  Receipt Date: 20050126
  Transmission Date: 20050727
  Serious: Yes (Hospitalization)
  Sender: FDA-Public Use
  Company Number: 163-20785-05010490

PATIENT
  Age: 81 Year
  Sex: Male

DRUGS (1)
  1. THALOMID [Suspect]
     Indication: ACUTE MYELOID LEUKAEMIA
     Dosage: 300 MG, DAILY, ORAL
     Route: 048
     Dates: start: 20040422, end: 20041001

REACTIONS (2)
  - CHOLELITHIASIS [None]
  - SOMNOLENCE [None]
